FAERS Safety Report 24146847 (Version 1)
Quarter: 2024Q3

REPORT INFORMATION
  Report Type: Spontaneous
  Country: DE (occurrence: DE)
  Receive Date: 20240729
  Receipt Date: 20240729
  Transmission Date: 20241017
  Serious: Yes (Hospitalization)
  Sender: JOHNSON AND JOHNSON
  Company Number: DE-JNJFOC-20240759943

PATIENT
  Sex: Male

DRUGS (1)
  1. ERLEADA [Suspect]
     Active Substance: APALUTAMIDE
     Indication: Hormone-dependent prostate cancer
     Dosage: 4 TABLETS
     Route: 048

REACTIONS (3)
  - Hospitalisation [Unknown]
  - Prostatic specific antigen increased [Unknown]
  - Fall [Unknown]

NARRATIVE: CASE EVENT DATE: 20240301
